FAERS Safety Report 18141810 (Version 2)
Quarter: 2020Q4

REPORT INFORMATION
  Report Type: Spontaneous
  Country: HU (occurrence: HU)
  Receive Date: 20200812
  Receipt Date: 20201014
  Transmission Date: 20210113
  Serious: No
  Sender: FDA-Public Use
  Company Number: HU-PFIZER INC-2020305150

PATIENT
  Sex: Female

DRUGS (2)
  1. METHYLPREDNISOLONE. [Suspect]
     Active Substance: METHYLPREDNISOLONE
     Indication: MIXED CONNECTIVE TISSUE DISEASE
     Dosage: UNK
     Route: 065
  2. AZATHIOPRINE. [Concomitant]
     Active Substance: AZATHIOPRINE
     Indication: MIXED CONNECTIVE TISSUE DISEASE
     Dosage: UNK

REACTIONS (2)
  - Off label use [Unknown]
  - Product use in unapproved indication [Unknown]
